FAERS Safety Report 5850538-5 (Version None)
Quarter: 2008Q3

REPORT INFORMATION
  Report Type: 
  Country: None (occurrence: None)
  Receive Date: 20080819
  Receipt Date: 20080819
  Transmission Date: 20090109
  Serious: Yes (Other)
  Sender: FDA-Public Use
  Company Number: None

PATIENT
  Age: 16 Year
  Sex: Male
  Weight: 58.9676 kg

DRUGS (2)
  1. RISPERDAL [Suspect]
     Indication: PSYCHOTIC DISORDER
     Dosage: .25 DAILY PO; .5MG DAILY PO
     Route: 048
     Dates: start: 20030301, end: 20070825
  2. RISPERDAL [Suspect]
     Indication: PSYCHOTIC DISORDER
     Dosage: .25 DAILY PO; .5MG DAILY PO
     Route: 048
     Dates: start: 20030301, end: 20080818

REACTIONS (2)
  - DRUG DISPENSING ERROR [None]
  - MEDICATION ERROR [None]
